FAERS Safety Report 9645202 (Version 1)
Quarter: 2013Q4

REPORT INFORMATION
  Report Type: Spontaneous
  Country: US (occurrence: None)
  Receive Date: 20131023
  Receipt Date: 20131023
  Transmission Date: 20140711
  Serious: Yes (Other)
  Sender: FDA-Public Use
  Company Number: None

PATIENT
  Age: 71 Year
  Sex: Female
  Weight: 63.5 kg

DRUGS (2)
  1. BOTOX [Suspect]
     Indication: MIGRAINE
     Route: 058
  2. RED YEAST RICE [Concomitant]

REACTIONS (4)
  - VIIth nerve paralysis [None]
  - Balance disorder [None]
  - Nausea [None]
  - Vision blurred [None]
